FAERS Safety Report 17412962 (Version 1)
Quarter: 2020Q1

REPORT INFORMATION
  Report Type: Spontaneous
  Country: US (occurrence: US)
  Receive Date: 20200212
  Receipt Date: 20200212
  Transmission Date: 20200409
  Serious: No
  Sender: FDA-Public Use
  Company Number: None

PATIENT
  Age: 63 Year
  Sex: Male
  Weight: 67.5 kg

DRUGS (5)
  1. LIFE EXTENSION MIX TABLETS [Concomitant]
  2. ULTRA PROSTATE FROMULA [Concomitant]
  3. ASPIRIN 81 MG [Concomitant]
     Active Substance: ASPIRIN
  4. CURCUMIN (TUMERIC EXTRACT) 200 MG [Concomitant]
  5. FINASTERIDE TAB 5MG [Suspect]
     Active Substance: FINASTERIDE
     Indication: BENIGN PROSTATIC HYPERPLASIA
     Dosage: ?          QUANTITY:1 TABLET(S);?
     Route: 048
     Dates: start: 20190701, end: 20200212

REACTIONS (2)
  - Paraesthesia [None]
  - Peripheral coldness [None]

NARRATIVE: CASE EVENT DATE: 20200210
